FAERS Safety Report 4712745-4 (Version None)
Quarter: 2005Q3

REPORT INFORMATION
  Report Type: 
  Country: None (occurrence: None)
  Receive Date: 20050701
  Receipt Date: 20050317
  Transmission Date: 20060218
  Serious: Yes (Other)
  Sender: FDA-Public Use
  Company Number: 2005046760

PATIENT
  Age: 37 Year
  Sex: Female

DRUGS (2)
  1. ZOLOFT [Suspect]
     Indication: ILL-DEFINED DISORDER
     Dosage: 200 MG, UNKNOWN
     Route: 065
  2. MIRTAZAPINE [Suspect]
     Indication: ILL-DEFINED DISORDER
     Route: 065

REACTIONS (4)
  - MURDER [None]
  - OVERDOSE [None]
  - PHYSICAL ASSAULT [None]
  - SUICIDE ATTEMPT [None]
